FAERS Safety Report 5860676-9 (Version None)
Quarter: 2008Q3

REPORT INFORMATION
  Report Type: 
  Country: None (occurrence: None)
  Receive Date: 20080826
  Receipt Date: 20080812
  Transmission Date: 20090109
  Serious: Yes (Other)
  Sender: FDA-Public Use
  Company Number: 236840J08USA

PATIENT
  Age: 49 Year
  Sex: Female
  Weight: 72.5755 kg

DRUGS (12)
  1. REBIF [Suspect]
     Indication: MULTIPLE SCLEROSIS
     Dosage: 44 MCG, 3 IN 1 WEEKS, SUBCUTANEOUS
     Route: 058
     Dates: start: 20070627
  2. PREVACID [Concomitant]
  3. LASIX (FUROSEMIDE / 00032601) [Concomitant]
  4. POTASSIUM / 00031401/) [Concomitant]
  5. XANAX [Concomitant]
  6. TRICOR [Concomitant]
  7. UNSPECIFIED MEDICATION (OTHER CHOLESTEROL AND TRIGLYCERIDE REDUCERS) [Concomitant]
  8. ALEVE (CAPLET) [Concomitant]
  9. PERCOCET [Concomitant]
  10. UNSPECIFED ANTIDEPRESSANT (ANTIDEPRESSANTS) [Concomitant]
  11. UNSPECIFIED ANTIDEPRESSANT (ANTIDEPRESSANTS) [Concomitant]
  12. UNSPECIFIED LIQUID FOR BOWELS [Concomitant]

REACTIONS (12)
  - CONSTIPATION [None]
  - CONVULSION [None]
  - FAECALOMA [None]
  - GAIT DISTURBANCE [None]
  - GASTROINTESTINAL DISORDER [None]
  - GASTROINTESTINAL HYPOMOTILITY [None]
  - HEADACHE [None]
  - PAIN IN EXTREMITY [None]
  - POLYP [None]
  - SINUSITIS [None]
  - STRESS [None]
  - TREMOR [None]
